FAERS Safety Report 23857882 (Version 1)
Quarter: 2024Q2

REPORT INFORMATION
  Report Type: Spontaneous
  Country: MY (occurrence: MY)
  Receive Date: 20240515
  Receipt Date: 20240515
  Transmission Date: 20240716
  Serious: Yes (Other)
  Sender: FDA-Public Use
  Company Number: MY-MYLANLABS-2024M1043404

PATIENT
  Age: 3 Decade
  Sex: Female

DRUGS (3)
  1. ETOPOSIDE [Suspect]
     Active Substance: ETOPOSIDE
     Indication: Ovarian germ cell teratoma stage III
     Dosage: UNK, CYCLE, RECEIVED 3 CYCLES OF CHEMOTHERAPY
     Route: 065
  2. CISPLATIN [Suspect]
     Active Substance: CISPLATIN
     Indication: Ovarian germ cell teratoma stage III
     Dosage: UNK, CYCLE, RECEIVED 3 CYCLES OF CHEMOTHERAPY
     Route: 065
  3. BLEOMYCIN [Suspect]
     Active Substance: BLEOMYCIN SULFATE
     Indication: Ovarian germ cell teratoma stage III
     Dosage: UNK UNK, CYCLE, RECEIVED 3 CYCLES OF CHEMOTHERAPY
     Route: 065

REACTIONS (3)
  - Vomiting [Unknown]
  - Hypokalaemia [Unknown]
  - Hyponatraemia [Unknown]
